FAERS Safety Report 23852764 (Version 2)
Quarter: 2024Q2

REPORT INFORMATION
  Report Type: Spontaneous
  Country: PL (occurrence: PL)
  Receive Date: 20240514
  Receipt Date: 20240605
  Transmission Date: 20240716
  Serious: Yes (Hospitalization, Other)
  Sender: FDA-Public Use
  Company Number: PL-002147023-NVSC2024PL099456

PATIENT
  Age: 61 Year
  Sex: Male
  Weight: 70 kg

DRUGS (3)
  1. SIPONIMOD [Suspect]
     Active Substance: SIPONIMOD
     Indication: Multiple sclerosis
     Dosage: UNK UNK, QD
     Route: 048
     Dates: start: 20240115, end: 20240506
  2. SIPONIMOD [Suspect]
     Active Substance: SIPONIMOD
     Indication: Secondary progressive multiple sclerosis
  3. CARBAMAZEPINE [Concomitant]
     Active Substance: CARBAMAZEPINE
     Indication: Neuralgia
     Dosage: 150 MG, BID (2X150MG)
     Route: 048

REACTIONS (4)
  - Cerebral thrombosis [Not Recovered/Not Resolved]
  - Headache [Unknown]
  - Anaemia [Unknown]
  - Lymphopenia [Unknown]

NARRATIVE: CASE EVENT DATE: 20240411
